FAERS Safety Report 14100880 (Version 1)
Quarter: 2017Q4

REPORT INFORMATION
  Report Type: Spontaneous
  Country: US (occurrence: None)
  Receive Date: 20171017
  Receipt Date: 20171017
  Transmission Date: 20180321
  Serious: Yes (Life-Threatening, Disabling, Other)
  Sender: FDA-Public Use
  Company Number: None

PATIENT
  Age: 66 Year
  Sex: Female
  Weight: 58.97 kg

DRUGS (8)
  1. LEVOTHYROXIN [Concomitant]
     Active Substance: LEVOTHYROXINE
  2. PREVACID [Concomitant]
     Active Substance: LANSOPRAZOLE
  3. CALCIUM [Concomitant]
     Active Substance: CALCIUM
  4. VIT B [Concomitant]
     Active Substance: VITAMIN B
  5. PAH [Concomitant]
  6. ZOLPIDEM [Suspect]
     Active Substance: ZOLPIDEM\ZOLPIDEM TARTRATE
     Indication: INSOMNIA
     Route: 048
     Dates: start: 2012, end: 20171002
  7. QUETIAPINE. [Concomitant]
     Active Substance: QUETIAPINE
  8. VITAMIN D [Concomitant]
     Active Substance: CHOLECALCIFEROL

REACTIONS (1)
  - Pain [None]

NARRATIVE: CASE EVENT DATE: 20170810
